FAERS Safety Report 5514108-0 (Version None)
Quarter: 2007Q4

REPORT INFORMATION
  Report Type: 
  Country: None (occurrence: None)
  Receive Date: 20071106
  Receipt Date: 20070828
  Transmission Date: 20080405
  Serious: Yes (Hospitalization)
  Sender: FDA-Public Use
  Company Number: US200708006102

PATIENT
  Age: 49 Year
  Sex: Male

DRUGS (4)
  1. CYMBALTA [Suspect]
     Indication: DEPRESSION
     Dosage: 20 MG ; 2.40 MG ; 60 MG
  2. CYMBALTA [Suspect]
     Indication: DEPRESSION
     Dosage: 20 MG ; 2.40 MG ; 60 MG
     Dates: start: 20070601
  3. PROZAC [Suspect]
     Indication: DEPRESSION
  4. KLONOPIN [Concomitant]

REACTIONS (2)
  - DRUG EFFECT DECREASED [None]
  - VOMITING [None]
